FAERS Safety Report 8399281-1 (Version None)
Quarter: 2012Q2

REPORT INFORMATION
  Report Type: 
  Country: None (occurrence: None)
  Receive Date: 20120531
  Receipt Date: 20120516
  Transmission Date: 20120825
  Serious: Yes (Hospitalization, Other)
  Sender: FDA-Public Use
  Company Number: FR-GLAXOSMITHKLINE-B0804869A

PATIENT
  Sex: Male
  Weight: 82.6 kg

DRUGS (4)
  1. MELPHALAN HYDROCHLORIDE [Suspect]
     Indication: MULTIPLE MYELOMA
     Route: 042
     Dates: start: 20120321, end: 20120321
  2. VELCADE [Concomitant]
     Indication: MULTIPLE MYELOMA
     Dates: start: 20110927
  3. IMMUNE GLOBULIN (HUMAN) [Concomitant]
     Indication: HYPOGAMMAGLOBULINAEMIA
     Route: 042
  4. DEXAMETHASONE [Concomitant]

REACTIONS (17)
  - MUCOSAL INFLAMMATION [None]
  - ABDOMINAL PAIN [None]
  - FEEDING DISORDER [None]
  - GENERAL PHYSICAL HEALTH DETERIORATION [None]
  - TACHYCARDIA [None]
  - DIARRHOEA [None]
  - AGEUSIA [None]
  - ABDOMINAL PAIN UPPER [None]
  - FEELING HOT [None]
  - GASTROOESOPHAGEAL REFLUX DISEASE [None]
  - PELVIC PAIN [None]
  - VOMITING [None]
  - GASTROENTERITIS [None]
  - THROMBOCYTOPENIA [None]
  - ESCHERICHIA SEPSIS [None]
  - ASTHENIA [None]
  - NAUSEA [None]
